FAERS Safety Report 16179253 (Version 1)
Quarter: 2019Q2

REPORT INFORMATION
  Report Type: Spontaneous
  Country: GR (occurrence: GR)
  Receive Date: 20190410
  Receipt Date: 20190410
  Transmission Date: 20190711
  Serious: Yes (Other)
  Sender: FDA-Public Use
  Company Number: GR-AMNEAL PHARMACEUTICALS-2019AMN00424

PATIENT
  Age: 62 Year
  Sex: Male

DRUGS (5)
  1. VANCOMYCIN [Suspect]
     Active Substance: VANCOMYCIN
     Indication: STAPHYLOCOCCAL INFECTION
     Dosage: UNK
     Route: 065
  2. TIGECYCLINE. [Suspect]
     Active Substance: TIGECYCLINE
     Dosage: 100 MG, 2X/DAY
     Route: 042
  3. TIGECYCLINE. [Suspect]
     Active Substance: TIGECYCLINE
     Indication: PNEUMONIA
     Dosage: 200 MG
     Route: 042
  4. COLISTIN [Suspect]
     Active Substance: COLISTIN
     Indication: PNEUMONIA
     Dosage: 9 MILLION IU LOADING DOSE, FOLLOWED AFTER 12 H BY MAINTENANCE DOSE OF 4.5 MILLION IU EVERY 12 HOURS
     Route: 042
  5. AMPICILLIN / SALBACTAM [Suspect]
     Active Substance: AMPICILLIN SODIUM\SULBACTAM SODIUM
     Indication: PNEUMONIA
     Dosage: AMPICILLIN / SALBACTAM: 9 GM (AMPICILLIN 6 GM AND SALBACTAM 3 GM) EVERY 8 HOURS
     Route: 042

REACTIONS (1)
  - Acute kidney injury [Not Recovered/Not Resolved]
